FAERS Safety Report 4668700-6 (Version None)
Quarter: 2005Q2

REPORT INFORMATION
  Report Type: 
  Country: None (occurrence: None)
  Receive Date: 20050523
  Receipt Date: 19990607
  Transmission Date: 20051028
  Serious: Yes (Hospitalization)
  Sender: FDA-Public Use
  Company Number: T99USA01524.2

PATIENT
  Age: 62 Year
  Sex: Male
  Weight: 82 kg

DRUGS (1)
  1. ZOLEDRONATE VS AREDIA [Suspect]
     Indication: METASTASES TO BONE
     Dosage: 4MG OT
     Route: 042
     Dates: start: 19990415

REACTIONS (3)
  - NECROSIS [None]
  - NEOPLASM MALIGNANT [None]
  - OSTEOMYELITIS [None]
